FAERS Safety Report 16124647 (Version 1)
Quarter: 2019Q1

REPORT INFORMATION
  Report Type: Spontaneous
  Country: DE (occurrence: DE)
  Receive Date: 20190327
  Receipt Date: 20190327
  Transmission Date: 20190418
  Serious: Yes (Hospitalization, Other)
  Sender: FDA-Public Use
  Company Number: PHHY2019DE065483

PATIENT
  Sex: Male

DRUGS (4)
  1. ETOPOSIDE. [Suspect]
     Active Substance: ETOPOSIDE
     Indication: SMALL CELL LUNG CANCER
     Dosage: 648 MILLIGRAM
     Route: 065
     Dates: start: 20140314
  2. ETOPOSIDE. [Suspect]
     Active Substance: ETOPOSIDE
     Dosage: 648 MILLIGRAM
     Route: 065
     Dates: start: 20180406
  3. CARBOPLATIN. [Suspect]
     Active Substance: CARBOPLATIN
     Dosage: 363.9 MILLIGRAM
     Route: 065
     Dates: start: 20180404
  4. CARBOPLATIN. [Suspect]
     Active Substance: CARBOPLATIN
     Indication: SMALL CELL LUNG CANCER
     Dosage: 363.9 MILLIGRAM
     Route: 065
     Dates: start: 20180314

REACTIONS (3)
  - Thrombocytopenia [Unknown]
  - Chronic kidney disease [Unknown]
  - Anaemia [Unknown]
